FAERS Safety Report 4874343-1 (Version None)
Quarter: 2006Q1

REPORT INFORMATION
  Report Type: 
  Country: None (occurrence: None)
  Receive Date: 20060104
  Receipt Date: 20051220
  Transmission Date: 20060701
  Serious: Yes (Other)
  Sender: FDA-Public Use
  Company Number: 2005171166

PATIENT
  Sex: Male
  Weight: 128.368 kg

DRUGS (15)
  1. VIAGRA [Suspect]
     Indication: ERECTILE DYSFUNCTION
     Dosage: (100 MG)  FIVE YEARS AGO
  2. ALL OTHER THERAPEUTIC PRODUCTS [Concomitant]
  3. LASIX [Concomitant]
  4. GUAIFENEX (GUAIFENESIN, PHENYLEPHRINE HYDROCHLORIDE, PHENYLPROPANOLAMI [Concomitant]
  5. THEO-24 (THEOPHYLLINE) [Concomitant]
  6. PLAVIX [Concomitant]
  7. ASPIRIN [Concomitant]
  8. LIPITOR [Concomitant]
  9. STARLIX [Concomitant]
  10. ACTOS [Concomitant]
  11. MONTELUKAST SODIUM [Concomitant]
  12. NORVASC [Concomitant]
  13. QUINAPRIL [Concomitant]
  14. INSULIN [Concomitant]
  15. TESTOSTERONE [Concomitant]

REACTIONS (4)
  - DRUG INEFFECTIVE [None]
  - MYOCARDIAL INFARCTION [None]
  - RENAL CELL CARCINOMA STAGE UNSPECIFIED [None]
  - TRANSURETHRAL PROSTATECTOMY [None]
